FAERS Safety Report 5371453-X (Version None)
Quarter: 2007Q2

REPORT INFORMATION
  Report Type: 
  Country: None (occurrence: None)
  Receive Date: 20070615
  Receipt Date: 20060607
  Transmission Date: 20071010
  Serious: Yes (Other)
  Sender: FDA-Public Use
  Company Number: 200614985US

PATIENT
  Sex: Male

DRUGS (1)
  1. LANTUS [Suspect]
     Dosage: 10 IU
     Dates: start: 20060606

REACTIONS (2)
  - ASTHENIA [None]
  - HYPERGLYCAEMIA [None]
